FAERS Safety Report 17518224 (Version 2)
Quarter: 2022Q1

REPORT INFORMATION
  Report Type: Report from Study
  Country: US (occurrence: None)
  Receive Date: 20200309
  Receipt Date: 20220303
  Transmission Date: 20220423
  Serious: Yes (Hospitalization, Other)
  Sender: FDA-Public Use
  Company Number: US-EISAI MEDICAL RESEARCH-EC-2019-066996

PATIENT
  Age: 74 Year
  Sex: Female
  Weight: 68.94 kg

DRUGS (29)
  1. LENVIMA [Suspect]
     Active Substance: LENVATINIB
     Indication: Endometrial cancer
     Route: 048
     Dates: start: 20191112, end: 2020
  2. LENVIMA [Suspect]
     Active Substance: LENVATINIB
     Route: 048
     Dates: start: 2020, end: 2020
  3. LENVIMA [Suspect]
     Active Substance: LENVATINIB
     Route: 048
     Dates: start: 2020
  4. LENVIMA [Suspect]
     Active Substance: LENVATINIB
     Route: 048
  5. LENVIMA [Suspect]
     Active Substance: LENVATINIB
     Route: 048
     Dates: end: 2022
  6. LENVIMA [Suspect]
     Active Substance: LENVATINIB
     Route: 048
     Dates: start: 2022, end: 202202
  7. KEYTRUDA [Suspect]
     Active Substance: PEMBROLIZUMAB
     Indication: Product used for unknown indication
     Dosage: FREQUENCY AND DOSE UNKNOWN.
     Route: 065
  8. ENTRESTO [Suspect]
     Active Substance: SACUBITRIL\VALSARTAN
     Indication: Product used for unknown indication
     Dosage: DOSE AND FREQUENCY UNKNOWN
     Route: 065
     Dates: end: 2021
  9. OXYGEN [Concomitant]
     Active Substance: OXYGEN
  10. ELIQUIS [Concomitant]
     Active Substance: APIXABAN
  11. SPIRONOLACTONE [Concomitant]
     Active Substance: SPIRONOLACTONE
  12. SIMVASTATIN [Concomitant]
     Active Substance: SIMVASTATIN
  13. ASPIRIN [Concomitant]
     Active Substance: ASPIRIN
  14. NORTRIPTYLINE [Concomitant]
     Active Substance: NORTRIPTYLINE
  15. SYNTHROID [Concomitant]
     Active Substance: LEVOTHYROXINE SODIUM
  16. EPLERENONE [Concomitant]
     Active Substance: EPLERENONE
  17. CARVEDILOL [Concomitant]
     Active Substance: CARVEDILOL
  18. ALBUTEROL SULFATE [Concomitant]
     Active Substance: ALBUTEROL SULFATE
  19. VITAMINS [Concomitant]
     Active Substance: VITAMINS
  20. CITRACAL + D MAXIMUM [Concomitant]
  21. FLONASE ALLERGY RELIEF [Concomitant]
     Active Substance: FLUTICASONE PROPIONATE
  22. LOW DOSE ASPIRIN [Concomitant]
     Active Substance: ASPIRIN
  23. CORLANOR [Concomitant]
     Active Substance: IVABRADINE HYDROCHLORIDE
  24. VITAMIN D3 [Concomitant]
     Active Substance: CHOLECALCIFEROL
  25. LASIX [Concomitant]
     Active Substance: FUROSEMIDE
  26. LISINOPRIL [Concomitant]
     Active Substance: LISINOPRIL
  27. CALCIUM [Concomitant]
     Active Substance: CALCIUM
  28. FLUTICASONE [Concomitant]
     Active Substance: FLUTICASONE
  29. CALCIUM CITRATE-VIT D3 [Concomitant]

REACTIONS (21)
  - Dyspnoea [Unknown]
  - Pulmonary embolism [Unknown]
  - Pulmonary oedema [Unknown]
  - Fatigue [Unknown]
  - Diarrhoea [Unknown]
  - Nausea [Unknown]
  - Myalgia [Unknown]
  - Arthralgia [Unknown]
  - Cough [Unknown]
  - Blood pressure increased [Recovering/Resolving]
  - Oral pain [Unknown]
  - Visual impairment [Unknown]
  - Nasal dryness [Unknown]
  - Cardiac disorder [Unknown]
  - Hypotension [Recovering/Resolving]
  - Rhinorrhoea [Unknown]
  - Lacrimation increased [Unknown]
  - Product packaging difficult to open [Unknown]
  - Heart rate decreased [Unknown]
  - Malignant neoplasm progression [Unknown]
  - Impaired quality of life [Unknown]

NARRATIVE: CASE EVENT DATE: 20190101
